FAERS Safety Report 11869499 (Version 1)
Quarter: 2015Q4

REPORT INFORMATION
  Report Type: Report from Study
  Country: CH (occurrence: CH)
  Receive Date: 20151227
  Receipt Date: 20151227
  Transmission Date: 20160305
  Serious: Yes (Death, Hospitalization, Other)
  Sender: FDA-Public Use
  Company Number: CH-ROCHE-1141449

PATIENT

DRUGS (5)
  1. MYCOPHENOLATE MOFETIL. [Suspect]
     Active Substance: MYCOPHENOLATE MOFETIL
     Indication: AUTOIMMUNE DISORDER
     Route: 065
  2. RITUXIMAB [Suspect]
     Active Substance: RITUXIMAB
     Indication: AUTOIMMUNE DISORDER
     Route: 042
  3. METHOTREXATE [Suspect]
     Active Substance: METHOTREXATE
     Indication: AUTOIMMUNE DISORDER
     Route: 065
  4. AZATHIOPRINE. [Suspect]
     Active Substance: AZATHIOPRINE
     Indication: AUTOIMMUNE DISORDER
     Route: 065
  5. LEFLUNOMIDE. [Suspect]
     Active Substance: LEFLUNOMIDE
     Indication: AUTOIMMUNE DISORDER
     Route: 065

REACTIONS (19)
  - Sepsis [Unknown]
  - Abdominal infection [Fatal]
  - Pneumocystis jirovecii pneumonia [Unknown]
  - Systemic candida [Fatal]
  - Genitourinary tract infection [Unknown]
  - Skin infection [Unknown]
  - Osteomyelitis [Unknown]
  - Syphilis [Unknown]
  - Off label use [Unknown]
  - Lower respiratory tract infection [Unknown]
  - Aspergillus infection [Unknown]
  - Pneumonia [Fatal]
  - Upper respiratory tract infection [Unknown]
  - Soft tissue infection [Unknown]
  - Central nervous system infection [Unknown]
  - Arthritis infective [Unknown]
  - Nocardiosis [Unknown]
  - Pulmonary tuberculosis [Unknown]
  - Meningitis tuberculous [Unknown]
